FAERS Safety Report 7820183-0 (Version None)
Quarter: 2011Q4

REPORT INFORMATION
  Report Type: 
  Country: None (occurrence: None)
  Receive Date: 20111018
  Receipt Date: 20111012
  Transmission Date: 20120403
  Serious: Yes (Other)
  Sender: FDA-Public Use
  Company Number: JP-PFIZER INC-2011244102

PATIENT
  Age: 55 Year
  Sex: Male

DRUGS (1)
  1. UNASYN [Suspect]
     Dosage: 6 G, 4X/DAY

REACTIONS (1)
  - HENOCH-SCHONLEIN PURPURA [None]
